FAERS Safety Report 12666875 (Version 1)
Quarter: 2016Q3

REPORT INFORMATION
  Report Type: Spontaneous
  Country: GB (occurrence: GB)
  Receive Date: 20160819
  Receipt Date: 20160819
  Transmission Date: 20161109
  Serious: Yes (Hospitalization)
  Sender: FDA-Public Use
  Company Number: GB-ASTRAZENECA-2016SE87817

PATIENT
  Age: 64 Year
  Sex: Female

DRUGS (4)
  1. CYCLIZINE [Concomitant]
     Active Substance: CYCLIZINE
     Dates: start: 20160623
  2. AMOXICILLIN. [Suspect]
     Active Substance: AMOXICILLIN
     Route: 065
     Dates: start: 20160310, end: 20160517
  3. ATORVASTATIN [Concomitant]
     Active Substance: ATORVASTATIN
  4. OMEPRAZOLE. [Suspect]
     Active Substance: OMEPRAZOLE
     Dosage: 20 MG EVERY DAY, DOES NOT TAKE EVERY DAY
     Route: 048

REACTIONS (2)
  - Tubulointerstitial nephritis [Unknown]
  - Protein urine present [Unknown]

NARRATIVE: CASE EVENT DATE: 201604
